FAERS Safety Report 21755047 (Version 1)
Quarter: 2022Q4

REPORT INFORMATION
  Report Type: Spontaneous
  Country: MY (occurrence: MY)
  Receive Date: 20221220
  Receipt Date: 20221220
  Transmission Date: 20230112
  Serious: Yes (Other)
  Sender: FDA-Public Use
  Company Number: MY-002147023-NVSC2022MY289899

PATIENT
  Age: 59 Year
  Sex: Female

DRUGS (1)
  1. CEFAZOLIN SODIUM [Suspect]
     Active Substance: CEFAZOLIN SODIUM
     Indication: Appendicectomy
     Dosage: 1 G, QD
     Route: 042

REACTIONS (3)
  - Hypotension [Recovering/Resolving]
  - Bradycardia [Recovering/Resolving]
  - Oxygen saturation decreased [Recovering/Resolving]
